FAERS Safety Report 7726511-9 (Version None)
Quarter: 2011Q3

REPORT INFORMATION
  Report Type: 
  Country: None (occurrence: None)
  Receive Date: 20110902
  Receipt Date: 20110823
  Transmission Date: 20111222
  Serious: Yes (Hospitalization, Other)
  Sender: FDA-Public Use
  Company Number: PHHY2011FR75642

PATIENT
  Age: 22 Year
  Sex: Female

DRUGS (11)
  1. METHERGINE [Suspect]
     Dosage: 0.2 MG, SLOW IV INJECTION
     Route: 042
  2. SYNTOCINON [Suspect]
     Indication: AMNIOCENTESIS ABNORMAL
     Dosage: 5 U, IN 500 ML OF 5% GLUCOSE SOLUTION
  3. SUCCINYLCHOLINE CHLORIDE [Suspect]
  4. ATROPINE [Suspect]
     Dosage: 0.25 MG, UNK
  5. METHERGINE [Suspect]
     Dosage: 10 DRP, UNK
     Route: 048
  6. DYSMALGINE [Suspect]
     Indication: CERVIX DYSTOCIA
     Dosage: 10 DF, UNK
     Route: 042
  7. HYDERGINE [Suspect]
     Dosage: 3 DF, UNK
  8. EPONTOL [Suspect]
  9. SYNTOCINON [Suspect]
     Dosage: 5 U, IN 500 ML OF 5% GLUCOSE SOLUTION
  10. HYDERGINE [Suspect]
     Indication: HYPERTENSION
     Route: 042
  11. METHERGINE [Suspect]
     Dosage: 10 DRP, UNK
     Route: 048

REACTIONS (13)
  - DEPRESSED LEVEL OF CONSCIOUSNESS [None]
  - HYPERTENSION [None]
  - ELECTROENCEPHALOGRAM ABNORMAL [None]
  - LUMBAR PUNCTURE ABNORMAL [None]
  - HEMIPLEGIA [None]
  - MONOPARESIS [None]
  - MUSCULOSKELETAL STIFFNESS [None]
  - PHOTOPHOBIA [None]
  - ANGIOGRAM CEREBRAL ABNORMAL [None]
  - SENSORY LOSS [None]
  - POSTURE ABNORMAL [None]
  - HEADACHE [None]
  - AGITATION [None]
